FAERS Safety Report 11230457 (Version 1)
Quarter: 2015Q2

REPORT INFORMATION
  Report Type: Spontaneous
  Country: BR (occurrence: None)
  Receive Date: 20150629
  Receipt Date: 20150629
  Transmission Date: 20150821
  Serious: Yes (Hospitalization, Other)
  Sender: FDA-Public Use
  Company Number: B0749982A

PATIENT
  Age: 41 Year
  Sex: Female
  Weight: 72.5 kg

DRUGS (6)
  1. TENOFOVIR [Concomitant]
     Active Substance: TENOFOVIR
  2. RITONAVIR. [Concomitant]
     Active Substance: RITONAVIR
  3. LAMIVUDINE-HIV (LAMIVUDINE) [Concomitant]
     Active Substance: LAMIVUDINE
  4. MARAVIROC (MARAVIROC) FILM-COATED TABLET [Suspect]
     Active Substance: MARAVIROC
     Indication: HIV INFECTION
     Route: 048
     Dates: start: 20080703
  5. RALTEGRAVIR [Concomitant]
     Active Substance: RALTEGRAVIR
  6. DARUNAVIR [Concomitant]
     Active Substance: DARUNAVIR

REACTIONS (4)
  - Plasmablastic lymphoma [None]
  - Procedural complication [None]
  - Rectal adenocarcinoma [None]
  - Neurogenic bladder [None]

NARRATIVE: CASE EVENT DATE: 201101
